FAERS Safety Report 17469850 (Version 1)
Quarter: 2020Q1

REPORT INFORMATION
  Report Type: Report from Study
  Country: JP (occurrence: JP)
  Receive Date: 20200227
  Receipt Date: 20200227
  Transmission Date: 20200409
  Serious: Yes (Death, Hospitalization, Other)
  Sender: FDA-Public Use
  Company Number: JP-BRISTOL-MYERS SQUIBB COMPANY-BMS-2019-061489

PATIENT
  Age: 64 Year
  Sex: Male
  Weight: 68 kg

DRUGS (7)
  1. IPILIMUMAB [Suspect]
     Active Substance: IPILIMUMAB
     Indication: MALIGNANT MELANOMA
     Dosage: 3 MILLIGRAM/KILOGRAM
     Route: 041
     Dates: start: 20181019
  2. TEICOPLANIN [Concomitant]
     Active Substance: TEICOPLANIN
     Indication: CHOLANGITIS
     Dosage: 200 MILLIGRAM, BID
     Route: 065
     Dates: start: 20181221, end: 20181223
  3. TEICOPLANIN [Concomitant]
     Active Substance: TEICOPLANIN
     Indication: PANCREATITIS
     Route: 065
  4. TAZOPIPE [Suspect]
     Active Substance: PIPERACILLIN SODIUM\TAZOBACTAM SODIUM
     Indication: PANCREATITIS
     Dosage: 4.5 GRAM, TID
     Route: 065
     Dates: start: 20181212, end: 20181223
  5. ACETAMINOPHEN. [Suspect]
     Active Substance: ACETAMINOPHEN
     Indication: PYREXIA
     Dosage: 1000 MILLIGRAM, TID
     Route: 065
     Dates: start: 20181219, end: 20181223
  6. NIVOLUMAB [Suspect]
     Active Substance: NIVOLUMAB
     Indication: MALIGNANT MELANOMA
     Dosage: 80 MILLIGRAM
     Route: 041
     Dates: start: 20181019
  7. TAZOPIPE [Suspect]
     Active Substance: PIPERACILLIN SODIUM\TAZOBACTAM SODIUM
     Indication: CHOLANGITIS
     Route: 065

REACTIONS (7)
  - Pancreatitis [Not Recovered/Not Resolved]
  - Prescribed overdose [Unknown]
  - Cholangitis [Not Recovered/Not Resolved]
  - Pyrexia [Recovered/Resolved]
  - Drug eruption [Recovered/Resolved]
  - Malignant neoplasm progression [Fatal]
  - Hepatic function abnormal [Recovering/Resolving]

NARRATIVE: CASE EVENT DATE: 20181211
